FAERS Safety Report 8581722-8 (Version None)
Quarter: 2012Q3

REPORT INFORMATION
  Report Type: 
  Country: None (occurrence: None)
  Receive Date: 20120801
  Receipt Date: 20120801
  Transmission Date: 20120928
  Serious: Yes (Hospitalization)
  Sender: FDA-Public Use
  Company Number: None

PATIENT
  Age: 55 Year
  Sex: Female
  Weight: 56.6996 kg

DRUGS (1)
  1. TRILIPEX 135 MG ABBOTT [Suspect]
     Indication: BLOOD TRIGLYCERIDES INCREASED
     Dosage: 135 MG ONCE DAILY PO
     Route: 048
     Dates: start: 20120531, end: 20120715

REACTIONS (6)
  - DYSPEPSIA [None]
  - HEADACHE [None]
  - MUSCLE SPASMS [None]
  - HEPATITIS [None]
  - CHOLECYSTITIS [None]
  - PANCREATITIS [None]
